FAERS Safety Report 5295651-9 (Version None)
Quarter: 2007Q2

REPORT INFORMATION
  Report Type: 
  Country: None (occurrence: None)
  Receive Date: 20070410
  Receipt Date: 20070410
  Transmission Date: 20071010
  Serious: No
  Sender: FDA-Public Use
  Company Number: None

PATIENT
  Age: 41 Year
  Sex: Male
  Weight: 90.7194 kg

DRUGS (1)
  1. GENTAMICIN [Suspect]
     Dosage: 40MG ONCE A DAY INTRAPERITONEAL
     Route: 033
     Dates: start: 20061208, end: 20061230

REACTIONS (7)
  - ABASIA [None]
  - ACTIVITIES OF DAILY LIVING IMPAIRED [None]
  - BALANCE DISORDER [None]
  - BEDRIDDEN [None]
  - INJURY [None]
  - THERAPEUTIC AGENT TOXICITY [None]
  - VESTIBULAR DISORDER [None]
